FAERS Safety Report 6184659-7 (Version None)
Quarter: 2009Q2

REPORT INFORMATION
  Report Type: 
  Country: None (occurrence: None)
  Receive Date: 20090508
  Receipt Date: 20090430
  Transmission Date: 20091009
  Serious: Yes (Other)
  Sender: FDA-Public Use
  Company Number: US-JNJCH-2009012269

PATIENT
  Sex: Female

DRUGS (3)
  1. CALADRYL [Suspect]
     Indication: DERMATITIS CONTACT
     Dosage: TEXT:^APPLIED LIBERALLY ON AFFLICTED AREA^
     Route: 061
  2. CALADRYL [Suspect]
  3. CALADRYL [Suspect]

REACTIONS (3)
  - CONDITION AGGRAVATED [None]
  - SKIN HAEMORRHAGE [None]
  - SKIN INJURY [None]
